FAERS Safety Report 9486816 (Version 1)
Quarter: 2013Q3

REPORT INFORMATION
  Report Type: Spontaneous
  Country: US (occurrence: None)
  Receive Date: 20130827
  Receipt Date: 20130827
  Transmission Date: 20140515
  Serious: Yes (Hospitalization)
  Sender: FDA-Public Use
  Company Number: 163-21880-11102749

PATIENT
  Age: 60 Year
  Sex: Female

DRUGS (3)
  1. REVLIMID (LENALIDOMIDE) (25 MILLIGRAM, CAPSULES) [Suspect]
     Indication: PLASMA CELL MYELOMA
     Dosage: 1 IN 1 D
     Route: 048
     Dates: start: 201012
  2. VELCADE [Suspect]
     Indication: PLASMA CELL MYELOMA
     Dates: start: 201101, end: 20110331
  3. DEXAMETHASONE (DEXAMETHASONE) (UNKNOWN [Concomitant]

REACTIONS (2)
  - Neuropathy peripheral [None]
  - Colitis [None]
